FAERS Safety Report 6551830-1 (Version None)
Quarter: 2010Q1

REPORT INFORMATION
  Report Type: 
  Country: None (occurrence: None)
  Receive Date: 20100126
  Receipt Date: 20100122
  Transmission Date: 20100710
  Serious: Yes (Other)
  Sender: FDA-Public Use
  Company Number: GXKR2010DE01076

PATIENT
  Age: 71 Year
  Sex: Female

DRUGS (8)
  1. ALENDRONATE SODIUM [Suspect]
     Indication: OSTEOPOROSIS
     Dosage: 70 MG, QW
     Route: 048
     Dates: start: 20040601, end: 20091101
  2. ARAVA [Concomitant]
     Route: 048
  3. PREDNISOLON [Concomitant]
     Dosage: 8 MG, UNK
     Route: 048
  4. LISINOPRIL [Concomitant]
     Dosage: 2.5 MG, UNK
     Route: 048
  5. METOPROLOL [Concomitant]
     Dosage: 100 MG, UNK
     Route: 048
  6. IDEOS [Concomitant]
     Route: 048
  7. GABAPENTIN [Concomitant]
     Dosage: 900 MG, UNK
     Route: 048
  8. FENTANYL [Concomitant]
     Dosage: 100 UG/HR, UNK
     Route: 062

REACTIONS (1)
  - OSTEONECROSIS [None]
